FAERS Safety Report 25364406 (Version 1)
Quarter: 2025Q2

REPORT INFORMATION
  Report Type: Spontaneous
  Country: US (occurrence: US)
  Receive Date: 20250527
  Receipt Date: 20250527
  Transmission Date: 20250717
  Serious: Yes (Life-Threatening, Other)
  Sender: PFIZER
  Company Number: US-PFIZER INC-PV202500062832

PATIENT
  Age: 70 Year
  Sex: Female

DRUGS (4)
  1. AZITHROMYCIN [Suspect]
     Active Substance: AZITHROMYCIN
     Dates: start: 2023
  2. RIFABUTIN [Suspect]
     Active Substance: RIFABUTIN
  3. ETHAMBUTOL [Suspect]
     Active Substance: ETHAMBUTOL HYDROCHLORIDE
     Dates: start: 2023
  4. RIFAMPIN [Suspect]
     Active Substance: RIFAMPIN
     Dates: start: 2023

REACTIONS (6)
  - Lung disorder [Unknown]
  - Emphysema [Unknown]
  - Chronic obstructive pulmonary disease [Unknown]
  - Chronic respiratory failure [Unknown]
  - Toxic optic neuropathy [Unknown]
  - Drug intolerance [Unknown]
